FAERS Safety Report 14133743 (Version 2)
Quarter: 2018Q3

REPORT INFORMATION
  Report Type: Spontaneous
  Country: PR (occurrence: US)
  Receive Date: 20171027
  Receipt Date: 20180702
  Transmission Date: 20181010
  Serious: No
  Sender: FDA-Public Use
  Company Number: PR-PFIZER INC-2017460480

PATIENT
  Age: 46 Year
  Sex: Female

DRUGS (4)
  1. PERJETA [Concomitant]
     Active Substance: PERTUZUMAB
     Dosage: UNK
  2. HERCEPTIN [Concomitant]
     Active Substance: TRASTUZUMAB
     Dosage: UNK
  3. DOCETAXEL. [Suspect]
     Active Substance: DOCETAXEL
     Indication: BREAST CANCER
     Dosage: 75 MG, CYCLIC (EVERY THREE WEEKS)
     Dates: start: 20150212, end: 20150521
  4. PARAPLATIN [Concomitant]
     Active Substance: CARBOPLATIN
     Dosage: UNK

REACTIONS (2)
  - Alopecia [Not Recovered/Not Resolved]
  - Madarosis [Not Recovered/Not Resolved]
